FAERS Safety Report 8028563-8 (Version None)
Quarter: 2012Q1

REPORT INFORMATION
  Report Type: 
  Country: None (occurrence: None)
  Receive Date: 20120106
  Receipt Date: 20110511
  Transmission Date: 20120608
  Serious: No
  Sender: FDA-Public Use
  Company Number: US-MYLANLABS-2011S1010001

PATIENT
  Age: 71 Year
  Sex: Female
  Weight: 68.04 kg

DRUGS (4)
  1. VITAMIN D [Concomitant]
     Dates: start: 20060101
  2. LOTREL [Concomitant]
     Indication: BLOOD PRESSURE INCREASED
     Dosage: 5MG/10MG
  3. LEVOTHYROXINE SODIUM [Concomitant]
     Indication: HYPOTHYROIDISM
  4. AZATHIOPRINE [Suspect]
     Indication: WEGENER'S GRANULOMATOSIS
     Route: 048
     Dates: start: 20110322, end: 20110429

REACTIONS (5)
  - PRODUCTIVE COUGH [None]
  - EAR PAIN [None]
  - MUSCLE SPASMS [None]
  - WHEEZING [None]
  - BURNING SENSATION [None]
